FAERS Safety Report 5217803-6 (Version None)
Quarter: 2006Q4

REPORT INFORMATION
  Report Type: 
  Country: None (occurrence: None)
  Receive Date: 20061130
  Receipt Date: 20060717
  Transmission Date: 20070319
  Serious: Yes (Hospitalization, Other)
  Sender: FDA-Public Use
  Company Number: US200607003259

PATIENT
  Age: 2 Year
  Sex: Female

DRUGS (1)
  1. ZYPREXA [Suspect]
     Dosage: UNK

REACTIONS (2)
  - ACCIDENTAL OVERDOSE [None]
  - SOMNOLENCE [None]
